FAERS Safety Report 7014639-0 (Version None)
Quarter: 2010Q3

REPORT INFORMATION
  Report Type: 
  Country: None (occurrence: None)
  Receive Date: 20100927
  Receipt Date: 20100922
  Transmission Date: 20110219
  Serious: Yes (Life-Threatening, Hospitalization)
  Sender: FDA-Public Use
  Company Number: CA-ROCHE-723581

PATIENT
  Sex: Female
  Weight: 70.5 kg

DRUGS (15)
  1. TOCILIZUMAB [Suspect]
     Indication: RHEUMATOID ARTHRITIS
     Route: 042
     Dates: start: 20061016, end: 20090330
  2. TOCILIZUMAB [Suspect]
     Dosage: TEMPORARILY INTERRUPTED
     Route: 042
     Dates: end: 20100822
  3. TOCILIZUMAB [Suspect]
     Dosage: LAST DOSE PRIOR TO SAE ON 20 JULY 2010.PERMANENTLY DISCONTINUED.
     Route: 042
     Dates: end: 20100914
  4. TOCILIZUMAB [Suspect]
     Dosage: THE PATIENT WAS PREVIOUSLY ENROLLED IN WA17824 AND RECEIVED TOCILIZUMAB 8 MG/KG. FORM: INFUSION
     Route: 042
  5. VITAMIN B COMPLEX CAP [Concomitant]
     Dates: start: 20060324
  6. VITAMIN B COMPLEX CAP [Concomitant]
     Dates: start: 20060524
  7. METHOTREXATE [Concomitant]
     Dates: start: 20080520, end: 20100822
  8. ASPIRIN [Concomitant]
     Dates: start: 20081005
  9. ZINC GLUCONATE [Concomitant]
     Dates: start: 20081125
  10. BIOFLAVONOIDS [Concomitant]
     Dates: start: 20070328
  11. VITALUX [Concomitant]
     Dates: start: 20081005
  12. LECITHIN [Concomitant]
     Dosage: TDD: 2 TBSP
     Dates: start: 20081022
  13. GINKGO BILOBA [Concomitant]
     Dates: start: 20081022
  14. VITAMIN B-12 [Concomitant]
     Dates: start: 20081109
  15. LEUCOVORIN CALCIUM [Concomitant]
     Dates: start: 20081113

REACTIONS (3)
  - CHOLECYSTITIS [None]
  - DIFFUSE LARGE B-CELL LYMPHOMA [None]
  - SMALL INTESTINAL OBSTRUCTION [None]
